FAERS Safety Report 12487640 (Version 3)
Quarter: 2017Q4

REPORT INFORMATION
  Report Type: Spontaneous
  Country: US (occurrence: US)
  Receive Date: 20160622
  Receipt Date: 20171117
  Transmission Date: 20180320
  Serious: Yes (Hospitalization)
  Sender: FDA-Public Use
  Company Number: US-SUN PHARMACEUTICAL INDUSTRIES LTD-2016US-118615

PATIENT
  Age: 59 Year
  Sex: Female

DRUGS (12)
  1. CONJUGATED ESTROGENS [Concomitant]
     Active Substance: ESTROGENS, CONJUGATED
     Dosage: 0.45/1.5 MG, QD
     Route: 048
  2. SENNA [Concomitant]
     Active Substance: SENNA LEAF\SENNOSIDES\SENNOSIDES A AND B
     Dosage: 8.6 MG, QD
     Route: 048
  3. LEVETIRACETAM. [Concomitant]
     Active Substance: LEVETIRACETAM
     Dosage: 750 MG, BID
     Route: 048
  4. CLONAZEPAM. [Concomitant]
     Active Substance: CLONAZEPAM
     Dosage: 1 MG, TID
     Route: 048
  5. LEVOTHYROXINE. [Concomitant]
     Active Substance: LEVOTHYROXINE
  6. ATORVASTATIN [Concomitant]
     Active Substance: ATORVASTATIN
     Dosage: 10 MG, QD (AT BEDTIME)
     Route: 048
  7. CALCIUM AND VITAMIN D SUPPLEMENTATION [Concomitant]
     Dosage: UNK, BID
     Route: 048
  8. MICONAZOLE NITRATE. [Concomitant]
     Active Substance: MICONAZOLE NITRATE
  9. THIORIDAZINE [Suspect]
     Active Substance: THIORIDAZINE
     Indication: AGITATION
     Dosage: 50 MG, TID
     Route: 048
     Dates: start: 20131105
  10. IBUPROFEN. [Concomitant]
     Active Substance: IBUPROFEN
     Dosage: 200 MG, PRN
  11. THIORIDAZINE [Suspect]
     Active Substance: THIORIDAZINE
     Indication: INTELLECTUAL DISABILITY
     Dosage: 100 MG, TID
     Route: 048
     Dates: start: 2013, end: 20131104
  12. THIORIDAZINE [Suspect]
     Active Substance: THIORIDAZINE
     Indication: PSYCHOTIC DISORDER

REACTIONS (1)
  - Hypothermia [Recovered/Resolved]

NARRATIVE: CASE EVENT DATE: 2013
